FAERS Safety Report 8233277-5 (Version None)
Quarter: 2012Q1

REPORT INFORMATION
  Report Type: 
  Country: None (occurrence: None)
  Receive Date: 20120326
  Receipt Date: 20120314
  Transmission Date: 20120608
  Serious: Yes (Hospitalization)
  Sender: FDA-Public Use
  Company Number: FR-ELI_LILLY_AND_COMPANY-FR201202000572

PATIENT
  Age: 71 Year
  Sex: Female
  Weight: 72 kg

DRUGS (11)
  1. CALCIDOSE                          /00751519/ [Concomitant]
     Indication: OSTEOPOROSIS
  2. SINEMET [Concomitant]
     Indication: PARKINSON'S DISEASE
  3. ESCITALOPRAM OXALATE [Concomitant]
  4. FORTEO [Suspect]
     Dosage: 20 UG, QD
     Route: 058
     Dates: start: 20120130
  5. PRAMIPEXOLE DIHYDROCHLORIDE [Concomitant]
     Indication: PARKINSON'S DISEASE
  6. COMTAN [Concomitant]
     Indication: PARKINSON'S DISEASE
  7. VITAMIN D [Concomitant]
     Indication: OSTEOPOROSIS
  8. ACETAMINOPHEN AND CODEINE PHOSPHATE [Concomitant]
     Indication: BONE PAIN
     Dosage: UNK, PRN
  9. FORTEO [Suspect]
     Indication: OSTEOPOROSIS
     Dosage: 20 UG, QD
     Route: 058
     Dates: start: 20101001, end: 20111227
  10. DEPAKOTE [Concomitant]
  11. MIANSERINE [Concomitant]

REACTIONS (2)
  - CONSTIPATION [None]
  - PARKINSONIAN CRISIS [None]
